FAERS Safety Report 26097444 (Version 1)
Quarter: 2025Q4

REPORT INFORMATION
  Report Type: Spontaneous
  Country: EU (occurrence: EU)
  Receive Date: 20251127
  Receipt Date: 20251127
  Transmission Date: 20260117
  Serious: Yes (Other)
  Sender: REGENERON
  Company Number: EU-BAYER-2025A132980

PATIENT
  Age: 79 Year
  Sex: Female

DRUGS (3)
  1. EYLEA [Suspect]
     Active Substance: AFLIBERCEPT
     Indication: Age-related macular degeneration
     Dosage: 8 MG, ONCE-RIGHT EYE, SOLUTION FOR INJECTION IN PRE-FILLED SYRINGE, 114.3 MG/ML
     Dates: start: 20250605, end: 20250605
  2. EYLEA [Suspect]
     Active Substance: AFLIBERCEPT
     Dosage: 8 MG, ONCE-RIGHT EYE,  SOLUTION FOR INJECTION IN PRE-FILLED SYRINGE, 114.3 MG/ML
     Dates: start: 20250708, end: 20250708
  3. EYLEA [Suspect]
     Active Substance: AFLIBERCEPT
     Dosage: 8 MG, ONCE-RIGHT EYE; TOTAL OF 6 DOSES RECEIVED PRIOR TO ADVERSE EVENT,  SOLUTION FOR INJECTION IN P
     Dates: start: 20250805, end: 20250805

REACTIONS (6)
  - Keratic precipitates [Recovering/Resolving]
  - Iridocyclitis [Recovered/Resolved]
  - Iridocyclitis [Recovered/Resolved]
  - Lenticular opacities [Recovering/Resolving]
  - Eye inflammation [Recovering/Resolving]
  - Anterior chamber flare [Recovering/Resolving]

NARRATIVE: CASE EVENT DATE: 20250701
